FAERS Safety Report 6749402-9 (Version None)
Quarter: 2010Q2

REPORT INFORMATION
  Report Type: 
  Country: None (occurrence: None)
  Receive Date: 20100601
  Receipt Date: 20100525
  Transmission Date: 20101027
  Serious: Yes (Other)
  Sender: FDA-Public Use
  Company Number: FR-ROCHE-705035

PATIENT
  Sex: Female

DRUGS (13)
  1. ROCEPHIN [Suspect]
     Route: 042
     Dates: start: 20090806, end: 20090810
  2. AMITRIPTYLINE HCL [Suspect]
     Dosage: STRENGTH: 50 MG/2 ML; FORM: INJECTABLE SOLUTION
     Route: 042
     Dates: start: 20090808, end: 20090808
  3. SPASFON [Suspect]
     Dosage: FORM: INJECTABLE SOLUTION
     Route: 042
     Dates: start: 20090806, end: 20090809
  4. TRANXENE [Suspect]
     Indication: ANXIETY
     Dosage: STRENGTH: 20 MG/2ML
     Route: 042
     Dates: start: 20090806, end: 20090809
  5. FLAGYL [Suspect]
     Route: 048
     Dates: start: 20090807, end: 20090809
  6. ACLASTA [Concomitant]
     Dosage: FORM: SOLUTION FOR INFUSION
     Route: 042
     Dates: start: 20090804, end: 20090804
  7. LEVOTHYROXINE SODIUM [Concomitant]
     Dosage: START DATE: LONG TERM TREATMENT; FORM: DIVISIBLE TABLET
     Route: 048
  8. NEXIUM [Concomitant]
     Dosage: START DATE: LONG TERM TREATMENT; FORM: GASTRORESISTANT TABLET
     Route: 048
  9. AVLOCARDYL [Concomitant]
     Dosage: LONG TERM TREATMENT; FORM: DIVISIBLE TABLET
     Route: 048
     Dates: end: 20090806
  10. TRAMADOL [Concomitant]
     Dosage: LONG TERM TREATMENT
     Route: 048
     Dates: end: 20090806
  11. OROCAL [Concomitant]
     Dosage: START DATE: LONG TERM TREATMENT
     Route: 048
  12. PERFALGAN [Concomitant]
     Dosage: FORM: SOLUTION FOR INFUSION; STRENGTH: 10 MG/ML
     Route: 042
     Dates: start: 20090805
  13. OFLOXACIN [Concomitant]
     Route: 048
     Dates: start: 20090805, end: 20090806

REACTIONS (1)
  - MYOCLONUS [None]
